FAERS Safety Report 6696580-6 (Version None)
Quarter: 2010Q2

REPORT INFORMATION
  Report Type: 
  Country: None (occurrence: None)
  Receive Date: 20100426
  Receipt Date: 20100414
  Transmission Date: 20101027
  Serious: Yes (Hospitalization, Other)
  Sender: FDA-Public Use
  Company Number: JP-JNJFOC-20100308896

PATIENT
  Sex: Male

DRUGS (6)
  1. CRAVIT [Suspect]
     Indication: DIVERTICULITIS
     Route: 048
  2. OMEPRAL [Concomitant]
     Route: 048
  3. DIOVAN [Concomitant]
     Route: 048
  4. AMLODIN [Concomitant]
     Route: 048
  5. SELBEX [Concomitant]
     Route: 048
  6. CALCIUM CARBONATE [Concomitant]
     Route: 048

REACTIONS (2)
  - HOSPITALISATION [None]
  - TONIC CONVULSION [None]
